FAERS Safety Report 6299539-6 (Version None)
Quarter: 2009Q3

REPORT INFORMATION
  Report Type: 
  Country: None (occurrence: None)
  Receive Date: 20090803
  Receipt Date: 20090724
  Transmission Date: 20100115
  Serious: Yes (Other)
  Sender: FDA-Public Use
  Company Number: 8049431

PATIENT

DRUGS (3)
  1. KEPPRA [Suspect]
     Indication: CONVULSION
  2. VIMPAT [Suspect]
     Indication: BRAIN TUMOUR OPERATION
  3. VIMPAT [Suspect]
     Indication: CONVULSION

REACTIONS (2)
  - BRAIN TUMOUR OPERATION [None]
  - RASH MACULO-PAPULAR [None]
